FAERS Safety Report 9846180 (Version 2)
Quarter: 2014Q1

REPORT INFORMATION
  Report Type: Spontaneous
  Country: JP (occurrence: JP)
  Receive Date: 20140127
  Receipt Date: 20140127
  Transmission Date: 20141002
  Serious: Yes (Other)
  Sender: FDA-Public Use
  Company Number: JP-TEVA-455525ISR

PATIENT
  Age: 76 Year
  Sex: Female

DRUGS (1)
  1. ADEFURONIC ZUPO,50MG [Suspect]
     Indication: PAIN
     Dosage: 50 MILLIGRAM DAILY;

REACTIONS (1)
  - Anal injury [Recovered/Resolved]
